FAERS Safety Report 26013798 (Version 1)
Quarter: 2025Q4

REPORT INFORMATION
  Report Type: Spontaneous
  Country: EU (occurrence: EU)
  Receive Date: 20251107
  Receipt Date: 20251107
  Transmission Date: 20260117
  Serious: Yes (Death, Other)
  Sender: UNICHEM
  Company Number: EU-UNICHEM LABORATORIES LIMITED-UNI-2025-GR-003681

PATIENT

DRUGS (8)
  1. QUETIAPINE [Interacting]
     Active Substance: QUETIAPINE
     Indication: Major depression
     Dosage: UNK
     Route: 065
  2. QUETIAPINE [Interacting]
     Active Substance: QUETIAPINE
     Indication: Panic disorder
  3. PAROXETINE [Interacting]
     Active Substance: PAROXETINE
     Indication: Major depression
     Dosage: UNK
     Route: 065
  4. PAROXETINE [Interacting]
     Active Substance: PAROXETINE
     Indication: Panic disorder
  5. ALPRAZOLAM [Interacting]
     Active Substance: ALPRAZOLAM
     Indication: Major depression
     Dosage: UNK
     Route: 065
  6. ALPRAZOLAM [Interacting]
     Active Substance: ALPRAZOLAM
     Indication: Panic disorder
  7. CLOZAPINE [Interacting]
     Active Substance: CLOZAPINE
     Indication: Major depression
     Dosage: UNK
     Route: 065
  8. CLOZAPINE [Interacting]
     Active Substance: CLOZAPINE
     Indication: Panic disorder

REACTIONS (6)
  - Acute respiratory distress syndrome [Fatal]
  - Respiratory failure [Fatal]
  - Brain oedema [Fatal]
  - Serotonin syndrome [Fatal]
  - Toxicity to various agents [Fatal]
  - Drug interaction [Fatal]
